FAERS Safety Report 7767237-5 (Version None)
Quarter: 2011Q3

REPORT INFORMATION
  Report Type: 
  Country: None (occurrence: None)
  Receive Date: 20110922
  Receipt Date: 20110328
  Transmission Date: 20111222
  Serious: No
  Sender: FDA-Public Use
  Company Number: US-ASTRAZENECA-2011SE17505

PATIENT
  Age: 45 Year
  Sex: Female

DRUGS (16)
  1. PENICILLIN VK [Concomitant]
     Dates: start: 20031117
  2. TRAMADOL HCL [Concomitant]
     Indication: PAIN
     Dates: start: 20040722
  3. PRILOSEC [Concomitant]
     Dates: start: 20050408
  4. SEROQUEL [Suspect]
     Route: 048
     Dates: start: 20040722
  5. NAPROSYN [Concomitant]
     Dates: start: 20050408
  6. CIPRO XR [Concomitant]
     Dates: start: 20040121
  7. HYDROCOD/APAP [Concomitant]
     Dosage: 5/500 MG  1 OR 2 TABLETS 4 TIMES A DAY
     Dates: start: 20041108
  8. FLEXERIL [Concomitant]
     Indication: MUSCLE SPASMS
     Dates: start: 20050408
  9. NIASPAN [Concomitant]
  10. SKELAXIN [Concomitant]
     Dates: start: 20051207
  11. LIPITOR [Concomitant]
     Dates: start: 20051001
  12. ZOLOFT [Concomitant]
     Dates: start: 20050408
  13. AMBIEN [Concomitant]
     Dates: start: 20040813
  14. HYDROCOD/APAP [Concomitant]
     Dosage: 5/500 MG 1BID
     Dates: start: 20050408
  15. SOMA [Concomitant]
  16. ASPIRIN [Concomitant]
     Dates: start: 20050408

REACTIONS (8)
  - PIGMENTATION DISORDER [None]
  - HYPERTENSION [None]
  - DIABETES MELLITUS [None]
  - BLOOD POTASSIUM INCREASED [None]
  - PULMONARY CONGESTION [None]
  - WEIGHT DECREASED [None]
  - NECK PAIN [None]
  - COUGH [None]
